FAERS Safety Report 17997850 (Version 1)
Quarter: 2020Q3

REPORT INFORMATION
  Report Type: Spontaneous
  Country: US (occurrence: US)
  Receive Date: 20200708
  Receipt Date: 20200708
  Transmission Date: 20201103
  Serious: No
  Sender: FDA-Public Use
  Company Number: US-ASTRAZENECA-2020SE83021

PATIENT
  Age: 12 Year
  Sex: Female

DRUGS (1)
  1. KOSELUGO [Suspect]
     Active Substance: SELUMETINIB
     Indication: GLIOMA
     Dosage: MILLIGRAM PER SQUARE METER; TWO TIMES A DAY
     Route: 048

REACTIONS (1)
  - Weight increased [Unknown]
